FAERS Safety Report 8156952-X (Version None)
Quarter: 2012Q1

REPORT INFORMATION
  Report Type: 
  Country: None (occurrence: None)
  Receive Date: 20120222
  Receipt Date: 20120217
  Transmission Date: 20120608
  Serious: Yes (Other)
  Sender: FDA-Public Use
  Company Number: DE-BAYER-2011-119669

PATIENT
  Sex: Male

DRUGS (1)
  1. BETASERON [Suspect]

REACTIONS (2)
  - CHEST PAIN [None]
  - ATRIAL FIBRILLATION [None]
